FAERS Safety Report 4724504-7 (Version None)
Quarter: 2005Q3

REPORT INFORMATION
  Report Type: 
  Country: None (occurrence: None)
  Receive Date: 20050720
  Receipt Date: 20050720
  Transmission Date: 20060218
  Serious: Yes (Hospitalization, Other)
  Sender: FDA-Public Use
  Company Number: None

PATIENT
  Sex: Female
  Weight: 57.7 kg

DRUGS (5)
  1. CYTOXAN [Suspect]
     Indication: BREAST CANCER
     Dosage: SEE IMAGE
     Dates: start: 20050620, end: 20050620
  2. ADRIAMYCIN PFS [Suspect]
     Dosage: SEE IMAGE
     Route: 042
  3. PACLITAXEL [Suspect]
  4. GEMCITABINE [Suspect]
     Dosage: SEE IMAGE
  5. WELLBUTRIN [Concomitant]

REACTIONS (7)
  - ALCOHOLISM [None]
  - DEPRESSION [None]
  - INTENTIONAL MISUSE [None]
  - MARITAL PROBLEM [None]
  - OVERDOSE [None]
  - SUICIDAL IDEATION [None]
  - TREATMENT NONCOMPLIANCE [None]
